FAERS Safety Report 7076258-X (Version None)
Quarter: 2010Q4

REPORT INFORMATION
  Report Type: 
  Country: None (occurrence: None)
  Receive Date: 20101101
  Receipt Date: 20101025
  Transmission Date: 20110411
  Serious: Yes (Death, Hospitalization, Other)
  Sender: FDA-Public Use
  Company Number: FR-CELGENEUS-056-20785-10072563

PATIENT
  Sex: Female
  Weight: 60 kg

DRUGS (1)
  1. THALIDOMIDE [Suspect]
     Route: 048
     Dates: start: 20100430, end: 20100622

REACTIONS (5)
  - CONFUSIONAL STATE [None]
  - DISEASE PROGRESSION [None]
  - DRUG INEFFECTIVE [None]
  - LEUKAEMIA PLASMACYTIC [None]
  - NEOPLASM [None]
